FAERS Safety Report 10155232 (Version 2)
Quarter: 2014Q2

REPORT INFORMATION
  Report Type: Spontaneous
  Country: US (occurrence: US)
  Receive Date: 20140506
  Receipt Date: 20140506
  Transmission Date: 20141212
  Serious: No
  Sender: FDA-Public Use
  Company Number: US-TEVA-400346USA

PATIENT
  Sex: Female

DRUGS (1)
  1. CLARAVIS [Suspect]
     Indication: ACNE CYSTIC
     Dosage: STARTED 3 MONTHS AGO
     Route: 048
     Dates: start: 20130210, end: 20130420

REACTIONS (1)
  - Blood cholesterol increased [Unknown]
